FAERS Safety Report 8054359-7 (Version None)
Quarter: 2012Q1

REPORT INFORMATION
  Report Type: 
  Country: None (occurrence: None)
  Receive Date: 20120118
  Receipt Date: 20120113
  Transmission Date: 20120608
  Serious: Yes (Other)
  Sender: FDA-Public Use
  Company Number: PHHY2011US24870

PATIENT
  Sex: Male

DRUGS (4)
  1. STALEVO 100 [Suspect]
     Dosage: 150 MG, 4 TIMES A DAYS
     Route: 048
  2. STALEVO 100 [Suspect]
     Dosage: 150 MG, 5 TIMES A DAY
  3. LORAZEPAM [Concomitant]
     Dosage: UNK UKN, UNK
  4. CELEXA [Concomitant]
     Dosage: UNK UKN, UNK

REACTIONS (10)
  - FREEZING PHENOMENON [None]
  - ABDOMINAL PAIN [None]
  - DRUG EFFECT DECREASED [None]
  - PARALYSIS [None]
  - SPEECH DISORDER [None]
  - DYSSTASIA [None]
  - DYSPHAGIA [None]
  - DYSPNOEA [None]
  - TREMOR [None]
  - WRONG TECHNIQUE IN DRUG USAGE PROCESS [None]
